FAERS Safety Report 24612008 (Version 2)
Quarter: 2025Q3

REPORT INFORMATION
  Report Type: Spontaneous
  Country: AU (occurrence: AU)
  Receive Date: 20241113
  Receipt Date: 20250803
  Transmission Date: 20251020
  Serious: Yes (Other)
  Sender: ALEXION PHARMACEUTICALS
  Company Number: AU-SA-2024SA259197

PATIENT
  Age: 36 Year
  Sex: Male

DRUGS (8)
  1. SEROQUEL [Suspect]
     Active Substance: QUETIAPINE FUMARATE
     Indication: Product used for unknown indication
  2. PALIPERIDONE PALMITATE [Suspect]
     Active Substance: PALIPERIDONE PALMITATE
     Indication: Product used for unknown indication
  3. ATORVASTATIN [Suspect]
     Active Substance: ATORVASTATIN
     Indication: Product used for unknown indication
  4. CLONAZEPAM [Suspect]
     Active Substance: CLONAZEPAM
     Indication: Product used for unknown indication
  5. CLOZAPINE [Suspect]
     Active Substance: CLOZAPINE
     Indication: Schizophrenia
     Dates: start: 19980824, end: 20190214
  6. PALIPERIDONE [Suspect]
     Active Substance: PALIPERIDONE
     Indication: Schizophrenia
  7. PANTOPRAZOLE SODIUM [Suspect]
     Active Substance: PANTOPRAZOLE SODIUM
     Indication: Product used for unknown indication
  8. VALPROATE SODIUM [Suspect]
     Active Substance: VALPROATE SODIUM
     Indication: Product used for unknown indication

REACTIONS (12)
  - Anion gap increased [Unknown]
  - Blast cell count increased [Unknown]
  - Blood bicarbonate decreased [Unknown]
  - Blood osmolarity decreased [Unknown]
  - Blood sodium decreased [Unknown]
  - C-reactive protein increased [Recovered/Resolved]
  - Gamma-glutamyltransferase increased [Not Recovered/Not Resolved]
  - Mental impairment [Unknown]
  - Metamyelocyte count increased [Unknown]
  - Myelocyte count increased [Unknown]
  - Protein total increased [Unknown]
  - Troponin increased [Recovered/Resolved]

NARRATIVE: CASE EVENT DATE: 20190205
